FAERS Safety Report 6925284-7 (Version None)
Quarter: 2010Q3

REPORT INFORMATION
  Report Type: 
  Country: None (occurrence: None)
  Receive Date: 20100810
  Receipt Date: 20100804
  Transmission Date: 20110219
  Serious: Yes (Death)
  Sender: FDA-Public Use
  Company Number: 2010US003125

PATIENT
  Age: 55 Year
  Sex: Male
  Weight: 67 kg

DRUGS (13)
  1. PROGRAF [Suspect]
     Indication: RENAL TRANSPLANT
     Dosage: 1 MG, BID, ORAL
     Route: 048
     Dates: start: 20010322
  2. PREDNISONE [Concomitant]
  3. CELLCEPT [Concomitant]
  4. LISINOPRIL [Concomitant]
  5. METOPROLOL SUCCINATE [Concomitant]
  6. HYDROCHLOROTHIAZIDE [Concomitant]
  7. OMEPRAZOLE [Concomitant]
  8. SIMVASTATIN [Concomitant]
  9. FOSAMAX [Concomitant]
  10. INSULIN (INSULIN) [Concomitant]
  11. TAMSULOSIN HCL [Concomitant]
  12. MULTIVITAMIN [Concomitant]
  13. MINERALS NOS (MINERALS NOS) [Concomitant]

REACTIONS (1)
  - DIABETIC COMPLICATION [None]
